FAERS Safety Report 7020521-5 (Version None)
Quarter: 2010Q3

REPORT INFORMATION
  Report Type: 
  Country: None (occurrence: None)
  Receive Date: 20100929
  Receipt Date: 20100512
  Transmission Date: 20110219
  Serious: No
  Sender: FDA-Public Use
  Company Number: A0857185A

PATIENT
  Age: 2 Year
  Sex: Female

DRUGS (1)
  1. LAMOTRIGINE [Suspect]
     Dosage: 20MG TWICE PER DAY
     Route: 065
     Dates: start: 20100315

REACTIONS (3)
  - FUNGAL INFECTION [None]
  - RASH [None]
  - RASH ERYTHEMATOUS [None]
